FAERS Safety Report 25091146 (Version 1)
Quarter: 2025Q1

REPORT INFORMATION
  Report Type: Spontaneous
  Country: AU (occurrence: AU)
  Receive Date: 20250318
  Receipt Date: 20250318
  Transmission Date: 20250408
  Serious: Yes (Other)
  Sender: GE HEALTHCARE
  Company Number: AU-GE HEALTHCARE-2025CSU003134

PATIENT
  Age: 77 Year
  Sex: Female
  Weight: 59 kg

DRUGS (9)
  1. OMNIPAQUE [Suspect]
     Active Substance: IOHEXOL
     Indication: Computerised tomogram abdomen
     Route: 042
     Dates: start: 20250313, end: 20250313
  2. ROSUVASTATIN [Concomitant]
     Active Substance: ROSUVASTATIN
  3. XARELTO [Concomitant]
     Active Substance: RIVAROXABAN
  4. Zactin [Concomitant]
  5. CARDIZEM [Concomitant]
     Active Substance: DILTIAZEM HYDROCHLORIDE
  6. HIPREX [Concomitant]
     Active Substance: METHENAMINE HIPPURATE
  7. VITAMIN C [Concomitant]
     Active Substance: ASCORBIC ACID
  8. Ostelin [Concomitant]
     Dosage: 1000 IU, TID
  9. SYMBICORT [Concomitant]
     Active Substance: BUDESONIDE\FORMOTEROL FUMARATE DIHYDRATE

REACTIONS (6)
  - Dysphagia [Recovering/Resolving]
  - Dizziness [Recovering/Resolving]
  - Throat irritation [Recovering/Resolving]
  - Cough [Recovering/Resolving]
  - Mouth swelling [Recovering/Resolving]
  - Dysgeusia [Recovering/Resolving]

NARRATIVE: CASE EVENT DATE: 20250313
